FAERS Safety Report 5473533-7 (Version None)
Quarter: 2007Q4

REPORT INFORMATION
  Report Type: 
  Country: None (occurrence: None)
  Receive Date: 20071001
  Receipt Date: 20040312
  Transmission Date: 20080405
  Serious: Yes (Congenital Anomaly, Other)
  Sender: FDA-Public Use
  Company Number: US-PFIZER INC-2004203415US

PATIENT
  Sex: Female

DRUGS (2)
  1. DEPO-MEDROL [Suspect]
     Route: 030
  2. PREVACID [Suspect]

REACTIONS (8)
  - DYSGEUSIA [None]
  - LIP SWELLING [None]
  - PAROSMIA [None]
  - PHOTOSENSITIVITY REACTION [None]
  - SKIN BURNING SENSATION [None]
  - SKIN IRRITATION [None]
  - SWELLING FACE [None]
  - SWOLLEN TONGUE [None]
